FAERS Safety Report 26183498 (Version 1)
Quarter: 2025Q4

REPORT INFORMATION
  Report Type: Spontaneous
  Country: US (occurrence: US)
  Receive Date: 20251221
  Receipt Date: 20251221
  Transmission Date: 20260117
  Serious: Yes (Other)
  Sender: CSL BEHRING
  Company Number: US-BEH-2025229285

PATIENT
  Age: 9 Year
  Sex: Female

DRUGS (2)
  1. BERINERT [Suspect]
     Active Substance: HUMAN C1-ESTERASE INHIBITOR
     Dosage: UNK
     Route: 065
  2. BERINERT [Suspect]
     Active Substance: HUMAN C1-ESTERASE INHIBITOR
     Dosage: UNK
     Route: 065

REACTIONS (1)
  - Drug ineffective [Unknown]
